FAERS Safety Report 15377872 (Version 1)
Quarter: 2018Q3

REPORT INFORMATION
  Report Type: Report from Study
  Country: IT (occurrence: IT)
  Receive Date: 20180913
  Receipt Date: 20180913
  Transmission Date: 20181010
  Serious: Yes (Hospitalization)
  Sender: FDA-Public Use
  Company Number: IT-MYLANLABS-2018M1066510

PATIENT
  Age: 18 Year
  Sex: Female
  Weight: 48 kg

DRUGS (3)
  1. SERACTIL [Suspect]
     Active Substance: DEXIBUPROFEN
     Indication: TOOTHACHE
     Dosage: 800 MG, UNK
     Route: 048
     Dates: start: 20180825, end: 20180825
  2. TRANEXAMIC ACID. [Suspect]
     Active Substance: TRANEXAMIC ACID
     Indication: TOOTHACHE
     Dosage: 2 DF, UNK
     Route: 048
     Dates: start: 20180825, end: 20180825
  3. ACARBOSE. [Suspect]
     Active Substance: ACARBOSE
     Indication: TOOTHACHE
     Dosage: 2 DF, UNK
     Route: 048
     Dates: start: 20180825, end: 20180825

REACTIONS (2)
  - Medication error [Recovering/Resolving]
  - Abdominal pain upper [Recovering/Resolving]

NARRATIVE: CASE EVENT DATE: 20180825
